FAERS Safety Report 6266808-5 (Version None)
Quarter: 2009Q3

REPORT INFORMATION
  Report Type: 
  Country: None (occurrence: None)
  Receive Date: 20090709
  Receipt Date: 20090709
  Transmission Date: 20100115
  Serious: Yes (Death, Hospitalization, Disabling)
  Sender: FDA-Public Use
  Company Number: None

PATIENT
  Age: 64 Year
  Sex: Male
  Weight: 99.3377 kg

DRUGS (1)
  1. PEGFILGRASTIM 6MG (NEULASTA) AMGEN [Suspect]
     Indication: WHITE BLOOD CELL COUNT DECREASED
     Dosage: 6 MG 1 IM
     Route: 030
     Dates: start: 20090312

REACTIONS (8)
  - ABASIA [None]
  - BEDRIDDEN [None]
  - BLOOD PRESSURE DECREASED [None]
  - DYSPNOEA [None]
  - INTESTINAL HAEMORRHAGE [None]
  - MUSCULAR WEAKNESS [None]
  - OEDEMA PERIPHERAL [None]
  - WHITE BLOOD CELL COUNT INCREASED [None]
